FAERS Safety Report 7442000-3 (Version None)
Quarter: 2011Q2

REPORT INFORMATION
  Report Type: 
  Country: None (occurrence: None)
  Receive Date: 20110428
  Receipt Date: 20100330
  Transmission Date: 20111010
  Serious: No
  Sender: FDA-Public Use
  Company Number: US-ASTRAZENECA-2010SE13978

PATIENT
  Age: 14230 Day
  Sex: Female
  Weight: 61.2 kg

DRUGS (3)
  1. ZOMIG [Suspect]
     Indication: MIGRAINE
     Route: 048
     Dates: start: 20100330
  2. PENDALOL [Concomitant]
     Indication: TACHYCARDIA
  3. LOESTRIN 1.5/30 [Concomitant]

REACTIONS (3)
  - THROAT TIGHTNESS [None]
  - MUSCLE TIGHTNESS [None]
  - MIGRAINE [None]
